FAERS Safety Report 15676863 (Version 1)
Quarter: 2018Q4

REPORT INFORMATION
  Report Type: Spontaneous
  Country: US (occurrence: US)
  Receive Date: 20181130
  Receipt Date: 20181130
  Transmission Date: 20190205
  Serious: No
  Sender: FDA-Public Use
  Company Number: US-PFIZER INC-2018483094

PATIENT
  Age: 65 Year
  Sex: Female
  Weight: 56.7 kg

DRUGS (7)
  1. LYRICA [Suspect]
     Active Substance: PREGABALIN
     Indication: SPONDYLOLISTHESIS
  2. LYRICA [Suspect]
     Active Substance: PREGABALIN
     Indication: SCOLIOSIS
     Dosage: 75 MG, 2X/DAY
     Route: 048
     Dates: start: 201803
  3. LYRICA [Suspect]
     Active Substance: PREGABALIN
     Indication: OSTEOARTHRITIS
  4. PERCOCET [OXYCODONE HYDROCHLORIDE;OXYCODONE TEREPHTHALATE;PARACETAMOL] [Concomitant]
     Dosage: UNK, 3X/DAY [OXYCODONE: 10 MG/ACETAMINOPHEN: 325 MG]
     Route: 048
  5. MS CONTIN [Concomitant]
     Active Substance: MORPHINE SULFATE
     Dosage: 15 MG, 2X/DAY
  6. LYRICA [Suspect]
     Active Substance: PREGABALIN
     Indication: NEUROPATHY PERIPHERAL
     Dosage: 100 MG, 2X/DAY
     Route: 048
  7. LYRICA [Suspect]
     Active Substance: PREGABALIN
     Indication: FIBROMYALGIA

REACTIONS (7)
  - Speech disorder [Recovering/Resolving]
  - Confusional state [Recovering/Resolving]
  - Blood pressure abnormal [Recovering/Resolving]
  - Dizziness [Recovering/Resolving]
  - Euphoric mood [Recovering/Resolving]
  - Drug effect incomplete [Unknown]
  - Product use in unapproved indication [Not Recovered/Not Resolved]

NARRATIVE: CASE EVENT DATE: 201803
